FAERS Safety Report 23109753 (Version 1)
Quarter: 2023Q4

REPORT INFORMATION
  Report Type: Spontaneous
  Country: CN (occurrence: CN)
  Receive Date: 20231026
  Receipt Date: 20231026
  Transmission Date: 20240110
  Serious: Yes (Life-Threatening, Other)
  Sender: FDA-Public Use
  Company Number: CN-BAYER-2023A151915

PATIENT
  Age: 47 Year
  Sex: Female

DRUGS (2)
  1. ULTRAVIST [Suspect]
     Active Substance: IOPROMIDE
     Indication: Scan with contrast
     Dosage: 90 ML, ONCE
     Route: 042
     Dates: start: 20231011, end: 20231011
  2. ULTRAVIST [Suspect]
     Active Substance: IOPROMIDE
     Indication: Stomach mass

REACTIONS (15)
  - Anaphylactic shock [Recovering/Resolving]
  - Dizziness [Recovering/Resolving]
  - Rash [Recovered/Resolved]
  - Blood pressure decreased [Recovering/Resolving]
  - Vomiting [None]
  - Conjunctival hyperaemia [None]
  - Conjunctival oedema [None]
  - Heart rate increased [Recovered/Resolved]
  - Head discomfort [Recovering/Resolving]
  - Eye swelling [Recovering/Resolving]
  - Peripheral coldness [None]
  - Pain in extremity [None]
  - Swelling of eyelid [Recovering/Resolving]
  - Ear swelling [Recovering/Resolving]
  - Heart rate decreased [Recovered/Resolved]

NARRATIVE: CASE EVENT DATE: 20231011
